FAERS Safety Report 20696954 (Version 3)
Quarter: 2022Q4

REPORT INFORMATION
  Report Type: Spontaneous
  Country: CA (occurrence: CA)
  Receive Date: 20220411
  Receipt Date: 20221019
  Transmission Date: 20230113
  Serious: Yes (Other)
  Sender: FDA-Public Use
  Company Number: CA-PFIZER INC-202200505430

PATIENT
  Age: 47 Year
  Sex: Male
  Weight: 83 kg

DRUGS (7)
  1. XELJANZ [Suspect]
     Active Substance: TOFACITINIB CITRATE
     Indication: Colitis ulcerative
     Dosage: 10 MG, 2X/DAY
     Route: 048
     Dates: start: 20210918
  2. XELJANZ [Suspect]
     Active Substance: TOFACITINIB CITRATE
     Dosage: 5 MG, 2X/DAY
     Route: 048
  3. MESALAMINE [Concomitant]
     Active Substance: MESALAMINE
     Dosage: 4.8 G, 1X/DAY (4.8 G, 1X/DAY, ONCE DAILY AFTER DINNER)
     Route: 048
  4. MESALAMINE [Concomitant]
     Active Substance: MESALAMINE
     Indication: Colitis ulcerative
     Dosage: 4.8 G, 1X/DAY
     Route: 048
  5. MESALAMINE [Concomitant]
     Active Substance: MESALAMINE
     Dosage: 4.8 MG, 1X/DAY (DAILY)
     Route: 048
  6. MESALAMINE [Concomitant]
     Active Substance: MESALAMINE
     Dosage: 1.2 MG, 1X/DAY (1.2 MG, (1DF), 1X/DAY)
     Route: 048
  7. MESALAMINE [Concomitant]
     Active Substance: MESALAMINE
     Dosage: 1000 MG, 1X/DAY (1000 MG, 1X/DAY, ONCE DAILY AFTER DINNER)
     Route: 048

REACTIONS (7)
  - Haemorrhage [Unknown]
  - Rectal haemorrhage [Not Recovered/Not Resolved]
  - Condition aggravated [Recovering/Resolving]
  - Impaired quality of life [Unknown]
  - Frequent bowel movements [Unknown]
  - Stress [Not Recovered/Not Resolved]
  - Suspected COVID-19 [Not Recovered/Not Resolved]

NARRATIVE: CASE EVENT DATE: 20220101
